FAERS Safety Report 17041214 (Version 3)
Quarter: 2019Q4

REPORT INFORMATION
  Report Type: Spontaneous
  Country: US (occurrence: US)
  Receive Date: 20191118
  Receipt Date: 20191224
  Transmission Date: 20200122
  Serious: Yes (Other)
  Sender: FDA-Public Use
  Company Number: US-CIPLA LTD.-2019US06502

PATIENT

DRUGS (3)
  1. ALFUZOSIN [Suspect]
     Active Substance: ALFUZOSIN
     Indication: PROSTATOMEGALY
     Dosage: 1 DOSAGE FORM, QD, ONE AT BED TIME, FROM 2 MONTHS
     Route: 048
     Dates: start: 2019
  2. DICLOFENAC [Suspect]
     Active Substance: DICLOFENAC
     Indication: NEUROPATHY PERIPHERAL
     Dosage: UNK UNK, QD, ONE TIME AT NIGHT BEFORE GOING TO BED, FROM 2-4MONTHS
     Route: 061
     Dates: start: 2019
  3. FINASTERIDE. [Suspect]
     Active Substance: FINASTERIDE
     Indication: PROSTATOMEGALY
     Dosage: 1 DOSAGE FORM, QD, ONE AT BED TIME, FROM 2 MONTHS
     Route: 048
     Dates: start: 2019

REACTIONS (4)
  - Off label use [Unknown]
  - Wrong technique in product usage process [Unknown]
  - Product use in unapproved indication [Unknown]
  - Urinary retention [Recovered/Resolved]

NARRATIVE: CASE EVENT DATE: 2019
